FAERS Safety Report 7363591-7 (Version None)
Quarter: 2011Q1

REPORT INFORMATION
  Report Type: 
  Country: None (occurrence: None)
  Receive Date: 20110321
  Receipt Date: 20110314
  Transmission Date: 20110831
  Serious: Yes (Other)
  Sender: FDA-Public Use
  Company Number: FR-PFIZER INC-2011056179

PATIENT
  Age: 60 Year
  Sex: Female

DRUGS (2)
  1. LYRICA [Suspect]
     Indication: FIBROMYALGIA
     Dosage: 25 MG, 1X/DAY
     Dates: start: 20100701, end: 20100901
  2. LYRICA [Suspect]
     Indication: DYSKINESIA

REACTIONS (5)
  - MELANOCYTIC NAEVUS [None]
  - PRURITUS [None]
  - EYELID CYST [None]
  - VITREOUS DETACHMENT [None]
  - ECZEMA [None]
